FAERS Safety Report 7512124-0 (Version None)
Quarter: 2011Q2

REPORT INFORMATION
  Report Type: 
  Country: None (occurrence: None)
  Receive Date: 20110531
  Receipt Date: 20110520
  Transmission Date: 20111010
  Serious: Yes (Hospitalization)
  Sender: FDA-Public Use
  Company Number: US-AMGEN-QUU347141

PATIENT
  Age: 21 Year
  Sex: Female

DRUGS (2)
  1. ENBREL [Suspect]
     Dates: start: 20050101
  2. ENBREL [Suspect]
     Indication: RHEUMATOID ARTHRITIS
     Dosage: 50 MG, QWK
     Route: 058
     Dates: start: 20050101

REACTIONS (5)
  - NASAL DRYNESS [None]
  - NASAL DISCOMFORT [None]
  - RHEUMATOID ARTHRITIS [None]
  - EPISTAXIS [None]
  - STAPHYLOCOCCAL INFECTION [None]
